FAERS Safety Report 5956841-2 (Version None)
Quarter: 2008Q4

REPORT INFORMATION
  Report Type: 
  Country: None (occurrence: None)
  Receive Date: 20081031
  Receipt Date: 20080824
  Transmission Date: 20090506
  Serious: No
  Sender: FDA-Public Use
  Company Number: 2008PV036538

PATIENT
  Age: 47 Year
  Sex: Male
  Weight: 127.0072 kg

DRUGS (14)
  1. SYMLIN [Suspect]
     Indication: TYPE 2 DIABETES MELLITUS
     Dosage: 15 MCG;BID;SC
     Route: 058
     Dates: start: 20080816
  2. GLYBURIDE [Concomitant]
  3. METFORMIN HCL [Concomitant]
  4. HUMULIN N [Concomitant]
  5. HUMULIN R [Concomitant]
  6. GEMFIBROZIL [Concomitant]
  7. SIMVASTATIN [Concomitant]
  8. METAPROLOL [Concomitant]
  9. HYDROCHLOROTHIAZIDE [Concomitant]
  10. FISH OIL [Concomitant]
  11. ASPIRIN [Concomitant]
  12. VITAMIN D [Concomitant]
  13. MULTI-VITAMINS [Concomitant]
  14. BYETTA [Concomitant]

REACTIONS (2)
  - INSOMNIA [None]
  - MUSCLE TWITCHING [None]
